FAERS Safety Report 21812053 (Version 1)
Quarter: 2023Q1

REPORT INFORMATION
  Report Type: Spontaneous
  Country: CA (occurrence: CA)
  Receive Date: 20230103
  Receipt Date: 20230103
  Transmission Date: 20230417
  Serious: Yes (Death, Other)
  Sender: FDA-Public Use
  Company Number: CA-GILEAD-2022-0611278

PATIENT
  Age: 40 Year
  Sex: Male

DRUGS (1)
  1. VOSEVI [Suspect]
     Active Substance: SOFOSBUVIR\VELPATASVIR\VOXILAPREVIR
     Indication: Hepatitis C
     Dosage: 400MG/100MG/100MG
     Route: 048
     Dates: start: 20221111

REACTIONS (1)
  - Overdose [Fatal]

NARRATIVE: CASE EVENT DATE: 20221223
